FAERS Safety Report 15857904 (Version 1)
Quarter: 2019Q1

REPORT INFORMATION
  Report Type: Spontaneous
  Country: DE (occurrence: DE)
  Receive Date: 20190123
  Receipt Date: 20190123
  Transmission Date: 20190417
  Serious: Yes (Death, Life-Threatening, Hospitalization, Other)
  Sender: FDA-Public Use
  Company Number: DE-MACLEODS PHARMACEUTICALS US LTD-MAC2017006429

PATIENT

DRUGS (2)
  1. QUETIAPINE. [Suspect]
     Active Substance: QUETIAPINE
     Indication: SCHIZOPHRENIA
     Dosage: 600 MG, QD
     Route: 065
  2. LORAZEPAM. [Concomitant]
     Active Substance: LORAZEPAM
     Indication: SCHIZOPHRENIA
     Dosage: 2 MG, QD
     Route: 065

REACTIONS (13)
  - Tonsillitis [Unknown]
  - Multiple organ dysfunction syndrome [Fatal]
  - Agranulocytosis [Fatal]
  - Hypoxia [Unknown]
  - Oropharyngeal swelling [Unknown]
  - Nasopharyngitis [Unknown]
  - Aphasia [Unknown]
  - Hypotonia [Unknown]
  - Pharyngitis [Unknown]
  - Circulatory collapse [Unknown]
  - Oropharyngeal pain [Unknown]
  - Metabolic acidosis [Unknown]
  - Tachypnoea [Unknown]
